FAERS Safety Report 4504436-X (Version None)
Quarter: 2004Q4

REPORT INFORMATION
  Report Type: 
  Country: None (occurrence: None)
  Receive Date: 20041116
  Receipt Date: 20041104
  Transmission Date: 20050328
  Serious: Yes (Disabling, Other)
  Sender: FDA-Public Use
  Company Number: TOS-000655

PATIENT
  Age: 66 Year
  Sex: Male
  Weight: 67.1 kg

DRUGS (7)
  1. TOSITUMOMAB, IODINE I 131 TOSITUMOMAB(TOSITUMOMAB, IODINE I 131 TOSITU [Suspect]
     Indication: NON-HODGKIN'S LYMPHOMA
     Dosage: SEE IMAGE
     Route: 042
     Dates: start: 20000113, end: 20000113
  2. TOSITUMOMAB, IODINE I 131 TOSITUMOMAB(TOSITUMOMAB, IODINE I 131 TOSITU [Suspect]
     Indication: NON-HODGKIN'S LYMPHOMA
     Dosage: SEE IMAGE
     Route: 042
     Dates: start: 20000120, end: 20000120
  3. TOSITUMOMAB, IODINE I 131 TOSITUMOMAB(TOSITUMOMAB, IODINE I 131 TOSITU [Suspect]
     Indication: NON-HODGKIN'S LYMPHOMA
     Dosage: SEE IMAGE
     Route: 042
     Dates: start: 20000120, end: 20000120
  4. TOSITUMOMAB, IODINE I 131 TOSITUMOMAB(TOSITUMOMAB, IODINE I 131 TOSITU [Suspect]
     Indication: NON-HODGKIN'S LYMPHOMA
     Dosage: SEE IMAGE
     Route: 042
     Dates: start: 20000113, end: 20000813
  5. TOSITUMOMAB, IODINE I 131 TOSITUMOMAB(TOSITUMOMAB, IODINE I 131 TOSITU [Suspect]
  6. TOSITUMOMAB, IODINE I 131 TOSITUMOMAB(TOSITUMOMAB, IODINE I 131 TOSITU [Suspect]
  7. TOSITUMOMAB, IODINE I 131 TOSITUMOMAB(TOSITUMOMAB, IODINE I 131 TOSITU [Suspect]

REACTIONS (9)
  - ACUTE MYELOID LEUKAEMIA [None]
  - DISEASE PROGRESSION [None]
  - FEBRILE NEUTROPENIA [None]
  - LARYNGITIS [None]
  - MYELODYSPLASTIC SYNDROME [None]
  - PANCYTOPENIA [None]
  - POST PROCEDURAL COMPLICATION [None]
  - RADIATION MUCOSITIS [None]
  - RADIATION OESOPHAGITIS [None]
